FAERS Safety Report 7563921-7 (Version None)
Quarter: 2011Q2

REPORT INFORMATION
  Report Type: 
  Country: None (occurrence: None)
  Receive Date: 20110622
  Receipt Date: 20110608
  Transmission Date: 20111010
  Serious: Yes (Life-Threatening, Hospitalization, Other)
  Sender: FDA-Public Use
  Company Number: IT-PFIZER INC-2011010892

PATIENT
  Age: 54 Year
  Sex: Female

DRUGS (1)
  1. SUTENT [Suspect]
     Indication: RENAL CANCER STAGE IV
     Dosage: 25 MG, 1X/DAY
     Route: 048
     Dates: start: 20070331, end: 20080611

REACTIONS (9)
  - NAUSEA [None]
  - VERTIGO [None]
  - BLOOD CHOLESTEROL INCREASED [None]
  - DECREASED APPETITE [None]
  - HYPOTHYROIDISM [None]
  - ASTHENIA [None]
  - VOMITING [None]
  - FLUID RETENTION [None]
  - MUCOSAL INFLAMMATION [None]
